FAERS Safety Report 20624712 (Version 1)
Quarter: 2022Q1

REPORT INFORMATION
  Report Type: Spontaneous
  Country: CN (occurrence: CN)
  Receive Date: 20220323
  Receipt Date: 20220323
  Transmission Date: 20220423
  Serious: Yes (Other)
  Sender: FDA-Public Use
  Company Number: CN-ABBVIE-22K-035-4326987-00

PATIENT
  Age: 49 Year
  Sex: Male
  Weight: 70 kg

DRUGS (3)
  1. VALPROATE SODIUM [Suspect]
     Active Substance: VALPROATE SODIUM
     Indication: Mental disorder
     Route: 048
     Dates: start: 20200624, end: 20200822
  2. OLANZAPINE [Suspect]
     Active Substance: OLANZAPINE
     Indication: Mental disorder
     Route: 048
     Dates: start: 20200714, end: 20200817
  3. CANNABIS SATIVA SEED\HERBALS [Concomitant]
     Active Substance: CANNABIS SATIVA SEED\HERBALS
     Indication: Faecal disimpaction
     Route: 048
     Dates: start: 20200624, end: 20200822

REACTIONS (2)
  - Neutrophil count decreased [Unknown]
  - Lethargy [Unknown]

NARRATIVE: CASE EVENT DATE: 20200811
